FAERS Safety Report 9999682 (Version 1)
Quarter: 2014Q1

REPORT INFORMATION
  Report Type: Spontaneous
  Country: US (occurrence: US)
  Receive Date: 20140312
  Receipt Date: 20140312
  Transmission Date: 20141002
  Serious: No
  Sender: FDA-Public Use
  Company Number: US-BAYER-2014-029673

PATIENT
  Age: 44 Year
  Sex: Female

DRUGS (2)
  1. CIPROFLOXACIN [Suspect]
     Indication: SUTURE RELATED COMPLICATION
  2. CIPROFLOXACIN [Suspect]
     Indication: ANTIBIOTIC THERAPY

REACTIONS (1)
  - Drug hypersensitivity [None]
